FAERS Safety Report 7625625-1 (Version None)
Quarter: 2011Q3

REPORT INFORMATION
  Report Type: 
  Country: None (occurrence: None)
  Receive Date: 20110721
  Receipt Date: 20110719
  Transmission Date: 20111222
  Serious: No
  Sender: FDA-Public Use
  Company Number: US-BAYER-2011-062952

PATIENT
  Sex: Female

DRUGS (1)
  1. BEYAZ [Suspect]
     Indication: OVARIAN CYST
     Dosage: UNK
     Dates: start: 20110713

REACTIONS (2)
  - EYE PAIN [None]
  - NECK PAIN [None]
